FAERS Safety Report 19174894 (Version 3)
Quarter: 2022Q1

REPORT INFORMATION
  Report Type: Spontaneous
  Country: ES (occurrence: ES)
  Receive Date: 20210423
  Receipt Date: 20220124
  Transmission Date: 20220423
  Serious: Yes (Hospitalization, Other)
  Sender: FDA-Public Use
  Company Number: ES-VELOXIS PHARMACEUTICALS-2021VELES-000289

PATIENT
  Age: 29 Year
  Sex: Male

DRUGS (2)
  1. TACROLIMUS [Suspect]
     Active Substance: TACROLIMUS
     Indication: Immunosuppressant drug therapy
     Dosage: 2 MILLIGRAM, QD
     Route: 065
  2. CIDOFOVIR [Suspect]
     Active Substance: CIDOFOVIR
     Indication: Bowen^s disease
     Dosage: RECEIVED ONE DOSE OF 5 ML PER WEEK (CONCENTRATION OF 10 MG/ML, TWO DOSES) PRIOR TO SURGERY (TWO I...
     Route: 026

REACTIONS (7)
  - Onychalgia [Recovered/Resolved]
  - Nail necrosis [Recovered/Resolved]
  - Bowen^s disease [Recovered/Resolved]
  - Anogenital warts [Unknown]
  - Papilloma viral infection [Unknown]
  - Off label use [Recovered/Resolved]
  - Off label use [Unknown]
